FAERS Safety Report 23230274 (Version 1)
Quarter: 2023Q4

REPORT INFORMATION
  Report Type: Spontaneous
  Country: US (occurrence: None)
  Receive Date: 20231122
  Receipt Date: 20231122
  Transmission Date: 20240110
  Serious: Yes (Hospitalization)
  Sender: FDA-Public Use
  Company Number: None

PATIENT
  Age: 8 Day
  Sex: Female
  Weight: 2.77 kg

DRUGS (1)
  1. NIRSEVIMAB [Suspect]
     Active Substance: NIRSEVIMAB
     Indication: Antiviral prophylaxis
     Dosage: FREQUENCY : ONCE;?
     Route: 030
     Dates: start: 20231116, end: 20231116

REACTIONS (4)
  - Lethargy [None]
  - Hypophagia [None]
  - Apnoea [None]
  - Cyanosis [None]

NARRATIVE: CASE EVENT DATE: 20231117
